FAERS Safety Report 6914629-X (Version None)
Quarter: 2010Q3

REPORT INFORMATION
  Report Type: 
  Country: None (occurrence: None)
  Receive Date: 20100809
  Receipt Date: 20100802
  Transmission Date: 20110219
  Serious: Yes (Death)
  Sender: FDA-Public Use
  Company Number: TW-MERCK-1008TWN00001

PATIENT
  Age: 81 Year
  Sex: Male

DRUGS (1)
  1. CILASTATIN SODIUM AND IMIPENEM [Suspect]
     Indication: LUNG INFECTION
     Route: 041
     Dates: start: 20040101

REACTIONS (1)
  - DRUG INEFFECTIVE [None]
